FAERS Safety Report 5171141-9 (Version None)
Quarter: 2006Q4

REPORT INFORMATION
  Report Type: 
  Country: None (occurrence: None)
  Receive Date: 20061206
  Receipt Date: 20061206
  Transmission Date: 20070319
  Serious: Yes (Hospitalization)
  Sender: FDA-Public Use
  Company Number: None

PATIENT
  Age: 77 Year
  Sex: Male
  Weight: 87.9071 kg

DRUGS (2)
  1. ZOCOR [Suspect]
     Dosage: 20 MG  QHS PO
     Route: 048
     Dates: start: 20000901, end: 20061001
  2. SIMVASTATIN [Suspect]
     Dosage: 20 MG QHS PO
     Route: 048
     Dates: start: 20061001, end: 20061114

REACTIONS (7)
  - ABDOMINAL PAIN UPPER [None]
  - ALANINE AMINOTRANSFERASE INCREASED [None]
  - ASPARTATE AMINOTRANSFERASE INCREASED [None]
  - GASTROINTESTINAL HAEMORRHAGE [None]
  - HYPERCALCAEMIA [None]
  - PHARMACEUTICAL PRODUCT COMPLAINT [None]
  - RHABDOMYOLYSIS [None]
